FAERS Safety Report 8193008 (Version 2)
Quarter: 2012Q4

REPORT INFORMATION
  Report Type: 
  Country: DE (occurrence: DE)
  Receive Date: 20111021
  Receipt Date: 20120911
  Transmission Date: 20130627
  Serious: Yes (Hospitalization)
  Sender: FDA-Public Use
  Company Number: DE-RANBAXY-2009RR-20509

PATIENT
  Age: 75 Year
  Sex: Female
  Weight: 67 kg

DRUGS (11)
  1. AMOXICILLIN [Suspect]
     Indication: HELICOBACTER TEST POSITIVE
     Dosage: 1000 mg, bid
     Route: 048
     Dates: start: 20080828, end: 20080906
  2. PANTOZOL [Suspect]
     Indication: HELICOBACTER TEST POSITIVE
     Dosage: 40 mg, bid
     Route: 048
     Dates: start: 20080828, end: 20080906
  3. TAVANIC [Suspect]
     Indication: HELICOBACTER TEST POSITIVE
     Dosage: 500 mg, bid
     Route: 048
     Dates: start: 20080828, end: 20080906
  4. AMLODIPINE [Concomitant]
     Indication: HYPERTENSION
     Dosage: 5 mg, qd
     Route: 048
     Dates: start: 200805
  5. ASS HEXAL [Concomitant]
     Indication: THROMBOSIS PROPHYLAXIS
     Dosage: 100 mg, qd
     Route: 048
     Dates: start: 2005, end: 20080908
  6. BISOPROLOL [Concomitant]
     Indication: HYPERTENSION
     Dosage: 5 mg, qd
     Route: 048
     Dates: start: 1998
  7. DIGITOXIN [Concomitant]
     Indication: ATRIAL FIBRILLATION
     Dosage: 0.07 mg, qd
     Route: 048
     Dates: start: 20080529
  8. FEMARA [Concomitant]
     Indication: BREAST CANCER FEMALE
     Dosage: 2.5 mg, qd
     Route: 048
     Dates: start: 200712
  9. RAMIPRIL [Concomitant]
     Indication: HYPERTENSION
     Dosage: 2.5 mg, qd
     Route: 048
     Dates: start: 200805
  10. SELENASE [Concomitant]
     Indication: PROPHYLAXIS
     Dosage: 50 ug, qd
     Route: 048
     Dates: start: 2002, end: 20080908
  11. SIMVA BASICS [Concomitant]
     Indication: HEPATIC STEATOSIS
     Dosage: 20 mg, qd
     Route: 048
     Dates: start: 20080529

REACTIONS (12)
  - Diarrhoea [Recovered/Resolved]
  - Abdominal pain upper [Recovered/Resolved]
  - Dizziness [Recovered/Resolved]
  - General physical health deterioration [Recovered/Resolved]
  - Weight decreased [Recovered/Resolved]
  - Gastrointestinal disorder [Recovered/Resolved]
  - White blood cell count increased [None]
  - Activated partial thromboplastin time shortened [None]
  - Aspartate aminotransferase increased [None]
  - Alanine aminotransferase increased [None]
  - Gamma-glutamyltransferase increased [None]
  - Atrioventricular block [None]
